FAERS Safety Report 16114825 (Version 3)
Quarter: 2020Q1

REPORT INFORMATION
  Report Type: Spontaneous
  Country: US (occurrence: US)
  Receive Date: 20190325
  Receipt Date: 20200226
  Transmission Date: 20200409
  Serious: Yes (Other)
  Sender: FDA-Public Use
  Company Number: US-ASTRAZENECA-2019SE45119

PATIENT
  Age: 49 Year
  Sex: Female

DRUGS (37)
  1. VIOKASE [Concomitant]
     Active Substance: PANCRELIPASE
  2. AZELASTINE. [Concomitant]
     Active Substance: AZELASTINE HYDROCHLORIDE
  3. EPOETIN [Concomitant]
     Active Substance: ERYTHROPOIETIN
  4. ASPIRIN. [Concomitant]
     Active Substance: ASPIRIN
  5. LOSARTAN. [Concomitant]
     Active Substance: LOSARTAN
  6. OXYCODONE/ACETAMINOPHEN [Concomitant]
     Active Substance: ACETAMINOPHEN\OXYCODONE HYDROCHLORIDE
     Indication: PAIN
     Dates: start: 201008
  7. CANDESARTAN. [Concomitant]
     Active Substance: CANDESARTAN
     Indication: HYPERTENSION
     Dates: start: 200709
  8. HYDROCHLOROTHIAZIDE. [Concomitant]
     Active Substance: HYDROCHLOROTHIAZIDE
     Indication: HYPERTENSION
     Dates: start: 200707
  9. IMDUR [Concomitant]
     Active Substance: ISOSORBIDE MONONITRATE
  10. HYDRALAZINE [Concomitant]
     Active Substance: HYDRALAZINE HYDROCHLORIDE
  11. LORATADINE-PSEUDOEPHEDRINE [Concomitant]
  12. MESALAMINE. [Concomitant]
     Active Substance: MESALAMINE
  13. TRIAMCINOLONE [Concomitant]
     Active Substance: TRIAMCINOLONE
     Dates: start: 201010
  14. LANTHANUM [Concomitant]
     Active Substance: LANTHANUM
  15. AMLODIPINE [Concomitant]
     Active Substance: AMLODIPINE BESYLATE
  16. TRAMADOL. [Concomitant]
     Active Substance: TRAMADOL
  17. VITAMIN D [Concomitant]
     Active Substance: VITAMIN D NOS
  18. SULFAMETHOXAZOLE/TRIMETHOPRIM [Concomitant]
     Active Substance: SULFAMETHOXAZOLE\TRIMETHOPRIM
     Indication: INFECTION
     Dates: start: 200707
  19. CARVEDILOL. [Concomitant]
     Active Substance: CARVEDILOL
  20. SIMVASTATIN. [Concomitant]
     Active Substance: SIMVASTATIN
  21. FAMOTIDINE. [Concomitant]
     Active Substance: FAMOTIDINE
  22. NEXIUM [Suspect]
     Active Substance: ESOMEPRAZOLE MAGNESIUM
     Indication: GASTROOESOPHAGEAL REFLUX DISEASE
     Route: 048
     Dates: start: 20101110
  23. METOPROLOL TARTRATE. [Concomitant]
     Active Substance: METOPROLOL TARTRATE
     Indication: HYPERTENSION
  24. ADVAIR HFA [Concomitant]
     Active Substance: FLUTICASONE PROPIONATE\SALMETEROL XINAFOATE
  25. FISH OIL [Concomitant]
     Active Substance: FISH OIL
  26. NEXIUM [Suspect]
     Active Substance: ESOMEPRAZOLE MAGNESIUM
     Indication: GASTROOESOPHAGEAL REFLUX DISEASE
     Route: 048
     Dates: start: 200610, end: 201202
  27. NEXIUM [Suspect]
     Active Substance: ESOMEPRAZOLE MAGNESIUM
     Indication: GASTROOESOPHAGEAL REFLUX DISEASE
     Route: 048
     Dates: start: 20121006
  28. NEXIUM [Suspect]
     Active Substance: ESOMEPRAZOLE MAGNESIUM
     Indication: GASTROOESOPHAGEAL REFLUX DISEASE
     Route: 048
     Dates: start: 20070730
  29. METRONIDAZOLE. [Concomitant]
     Active Substance: METRONIDAZOLE
     Indication: INFECTION
     Dates: start: 200709
  30. ALBUTEROL. [Concomitant]
     Active Substance: ALBUTEROL
  31. BUDESONIDE. [Concomitant]
     Active Substance: BUDESONIDE
  32. POLYVINYL ALCOHOL [Concomitant]
     Active Substance: POLYVINYL ALCOHOL
  33. SENOKOT [Concomitant]
     Active Substance: SENNOSIDES
  34. VICODIN [Concomitant]
     Active Substance: ACETAMINOPHEN\HYDROCODONE BITARTRATE
  35. FUROSEMIDE. [Concomitant]
     Active Substance: FUROSEMIDE
     Indication: OEDEMA
     Dates: start: 201004
  36. SENNA S [Concomitant]
     Active Substance: DOCUSATE SODIUM\SENNA LEAF
     Indication: CONSTIPATION
     Dates: start: 201303
  37. LIDOCAINE. [Concomitant]
     Active Substance: LIDOCAINE

REACTIONS (5)
  - End stage renal disease [Unknown]
  - Renal failure [Unknown]
  - Nephrogenic anaemia [Unknown]
  - Chronic kidney disease [Not Recovered/Not Resolved]
  - Acute kidney injury [Unknown]

NARRATIVE: CASE EVENT DATE: 2001
